FAERS Safety Report 16565773 (Version 2)
Quarter: 2019Q3

REPORT INFORMATION
  Report Type: Spontaneous
  Country: GB (occurrence: GB)
  Receive Date: 20190712
  Receipt Date: 20190724
  Transmission Date: 20191004
  Serious: Yes (Other)
  Sender: FDA-Public Use
  Company Number: GB-009507513-1906GBR009532

PATIENT
  Sex: Male

DRUGS (3)
  1. RALTEGRAVIR POTASSIUM [Interacting]
     Active Substance: RALTEGRAVIR POTASSIUM
     Dosage: TOTAL DAILY DOSE: 1200 MILLIGRAM, QD
     Route: 048
     Dates: start: 201710, end: 201901
  2. VALPROATE SODIUM. [Interacting]
     Active Substance: VALPROATE SODIUM
     Indication: HIV INFECTION
  3. RALTEGRAVIR POTASSIUM [Suspect]
     Active Substance: RALTEGRAVIR POTASSIUM
     Indication: HIV INFECTION
     Dosage: 400 MILLIGRAM, BID
     Route: 048

REACTIONS (2)
  - Drug interaction [Unknown]
  - Drug level decreased [Unknown]
